FAERS Safety Report 12697139 (Version 1)
Quarter: 2016Q3

REPORT INFORMATION
  Report Type: Spontaneous
  Country: US (occurrence: None)
  Receive Date: 20160829
  Receipt Date: 20160829
  Transmission Date: 20161109
  Serious: Yes (Hospitalization)
  Sender: FDA-Public Use
  Company Number: None

PATIENT
  Age: 71 Year
  Sex: Male
  Weight: 54.43 kg

DRUGS (5)
  1. BLOOD PRESSURE MEDS [Concomitant]
  2. THYROID MEDS [Concomitant]
  3. ENBREL [Suspect]
     Active Substance: ETANERCEPT
     Indication: RHEUMATOID ARTHRITIS
     Dosage: 1 INJECTION (S) EVERY WEEK GIVEN INTO/UNDER THE SKIN
     Dates: end: 20160401
  4. GOUT MEDS [Concomitant]
  5. ASPIRIN. [Concomitant]
     Active Substance: ASPIRIN

REACTIONS (3)
  - Fungal infection [None]
  - Osteomyelitis [None]
  - Amputation [None]

NARRATIVE: CASE EVENT DATE: 20160614
